FAERS Safety Report 6698645-1 (Version None)
Quarter: 2010Q2

REPORT INFORMATION
  Report Type: 
  Country: None (occurrence: None)
  Receive Date: 20100427
  Receipt Date: 20100413
  Transmission Date: 20101027
  Serious: Yes (Other)
  Sender: FDA-Public Use
  Company Number: PHHY2010GB16103

PATIENT
  Sex: Male

DRUGS (8)
  1. CLOZARIL [Suspect]
     Indication: SCHIZOPHRENIA
     Dosage: UNK
     Dates: start: 20020628
  2. CLOZARIL [Suspect]
     Dosage: 450 MG, QD
     Dates: start: 20020805, end: 20090922
  3. CLOZARIL [Suspect]
     Dosage: 500 MG, QD
     Dates: start: 20090922
  4. VENLAFAXINE [Concomitant]
     Indication: ANXIETY
     Dosage: 150 MG, UNK
     Route: 048
     Dates: start: 20020727
  5. VENLAFAXINE [Concomitant]
     Indication: DEPRESSION
  6. OLANZAPINE [Concomitant]
     Indication: SCHIZOPHRENIA
     Dosage: 25 MG, UNK
     Route: 048
     Dates: end: 20020705
  7. PAROXETINE HCL [Concomitant]
     Dosage: 30 MG, UNK
     Route: 048
     Dates: end: 20020101
  8. HALOPERIDOL [Concomitant]
     Dosage: 5 MG, UNK
     Route: 048
     Dates: end: 20020101

REACTIONS (9)
  - BLOOD CHOLESTEROL INCREASED [None]
  - BLOOD GLUCOSE INCREASED [None]
  - COUGH [None]
  - DYSLIPIDAEMIA [None]
  - GLUCOSE TOLERANCE IMPAIRED [None]
  - HEART RATE INCREASED [None]
  - LOWER RESPIRATORY TRACT INFECTION [None]
  - TACHYCARDIA [None]
  - WHITE BLOOD CELL COUNT DECREASED [None]
